FAERS Safety Report 6996760-6 (Version None)
Quarter: 2010Q3

REPORT INFORMATION
  Report Type: 
  Country: None (occurrence: None)
  Receive Date: 20100918
  Receipt Date: 20090707
  Transmission Date: 20110219
  Serious: No
  Sender: FDA-Public Use
  Company Number: US-WYE-H10073009

PATIENT
  Sex: Female

DRUGS (3)
  1. EFFEXOR XR [Suspect]
     Indication: DEPRESSION
     Dosage: TIRATED UP TO 150 MG/DAY FROM 2007-UNKN, 75 MG/DAY FROM UNK-UNKN, 1/2 CAP/DAY FROM UNK-04-JUL-2009
     Route: 048
  2. EFFEXOR XR [Suspect]
     Indication: ANXIETY
  3. CLONAZEPAM [Concomitant]

REACTIONS (5)
  - ANXIETY [None]
  - DIZZINESS [None]
  - DRUG WITHDRAWAL SYNDROME [None]
  - INSOMNIA [None]
  - WRONG TECHNIQUE IN DRUG USAGE PROCESS [None]
